FAERS Safety Report 7309482-9 (Version None)
Quarter: 2011Q1

REPORT INFORMATION
  Report Type: 
  Country: None (occurrence: None)
  Receive Date: 20110223
  Receipt Date: 20110217
  Transmission Date: 20110831
  Serious: Yes (Death, Other)
  Sender: FDA-Public Use
  Company Number: US-AMGEN-USASP2011009697

PATIENT
  Age: 85 Year
  Sex: Female

DRUGS (4)
  1. NEULASTA [Suspect]
     Indication: BLADDER CANCER
  2. CARBOPLATIN [Concomitant]
  3. GEMCITABINE [Concomitant]
  4. PREDNISONE [Concomitant]

REACTIONS (3)
  - BACK PAIN [None]
  - CHEST PAIN [None]
  - SEPSIS [None]
